FAERS Safety Report 15090846 (Version 1)
Quarter: 2018Q2

REPORT INFORMATION
  Report Type: Spontaneous
  Country: US (occurrence: US)
  Receive Date: 20180629
  Receipt Date: 20180629
  Transmission Date: 20180711
  Serious: No
  Sender: FDA-Public Use
  Company Number: US-AMGEN-USASP2011015696

PATIENT
  Sex: Female

DRUGS (1)
  1. PROLIA [Suspect]
     Active Substance: DENOSUMAB
     Indication: OSTEOPOROSIS POSTMENOPAUSAL
     Dosage: 60 MG, Q6MO
     Dates: start: 201008

REACTIONS (4)
  - Hypoaesthesia [Recovered/Resolved]
  - Raynaud^s phenomenon [Unknown]
  - Dysphagia [Not Recovered/Not Resolved]
  - Oesophageal spasm [Not Recovered/Not Resolved]
